FAERS Safety Report 9537381 (Version 1)
Quarter: 2013Q3

REPORT INFORMATION
  Report Type: Report from Study
  Country: IL (occurrence: IL)
  Receive Date: 20130919
  Receipt Date: 20130919
  Transmission Date: 20140515
  Serious: Yes (Other)
  Sender: FDA-Public Use
  Company Number: PHHO2013IL011997

PATIENT
  Age: 68 Year
  Sex: Male

DRUGS (1)
  1. SANDOSTATIN LAR [Suspect]
     Indication: PANCREATIC NEUROENDOCRINE TUMOUR
     Dosage: UNK UKN, UNK

REACTIONS (2)
  - Prostate cancer [Not Recovered/Not Resolved]
  - Second primary malignancy [Not Recovered/Not Resolved]
